FAERS Safety Report 8390117-1 (Version None)
Quarter: 2012Q2

REPORT INFORMATION
  Report Type: 
  Country: None (occurrence: None)
  Receive Date: 20120529
  Receipt Date: 20120517
  Transmission Date: 20120825
  Serious: Yes (Hospitalization)
  Sender: FDA-Public Use
  Company Number: JP-JNJFOC-20120410508

PATIENT
  Sex: Female
  Weight: 48 kg

DRUGS (18)
  1. TRAMADOL HYDROCHLORIDE AND ACETAMINOPHEN [Suspect]
     Dosage: 1 PER 1 DAY
     Route: 048
     Dates: start: 20120124, end: 20120203
  2. RHEUMATREX [Suspect]
     Indication: PRODUCT USED FOR UNKNOWN INDICATION
     Route: 048
     Dates: start: 20120206
  3. TOCILIZUMAB [Suspect]
     Indication: PRODUCT USED FOR UNKNOWN INDICATION
     Route: 041
     Dates: end: 20111221
  4. GOLIMUMAB [Concomitant]
     Indication: RHEUMATOID ARTHRITIS
     Route: 058
     Dates: start: 20120201, end: 20120221
  5. CLARITHROMYCIN [Concomitant]
     Route: 048
  6. CYTOTEC [Concomitant]
     Indication: PROPHYLAXIS
     Route: 048
  7. MOTILIUM [Suspect]
     Dosage: 1 PER 1 DAY
     Route: 048
     Dates: start: 20120124, end: 20120203
  8. FOLIAMIN [Concomitant]
     Indication: PROPHYLAXIS
     Route: 048
  9. DIOVAN [Concomitant]
     Route: 048
  10. TRAMADOL HYDROCHLORIDE AND ACETAMINOPHEN [Suspect]
     Indication: RHEUMATOID ARTHRITIS
     Dosage: 1 PER 1 DAY
     Route: 048
     Dates: start: 20111226, end: 20120112
  11. URSO 250 [Concomitant]
     Indication: PROPHYLAXIS
     Route: 048
  12. LIPITOR [Concomitant]
     Route: 048
  13. FORTEO [Concomitant]
     Route: 058
  14. TRAMADOL HYDROCHLORIDE AND ACETAMINOPHEN [Suspect]
     Dosage: 1 PER 1 DAY
     Route: 048
     Dates: start: 20120113, end: 20120123
  15. MOTILIUM [Suspect]
     Indication: PRODUCT USED FOR UNKNOWN INDICATION
     Dosage: 1 PER 1 DAY
     Route: 048
     Dates: start: 20111226, end: 20120112
  16. MOTILIUM [Suspect]
     Dosage: 1 PER 1 DAY
     Route: 048
     Dates: start: 20120113, end: 20120123
  17. LANSOPRAZOLE [Concomitant]
     Indication: PROPHYLAXIS
     Route: 048
  18. ITRACONAZOLE [Concomitant]
     Route: 048

REACTIONS (1)
  - GASTRIC CANCER [None]
